FAERS Safety Report 14782537 (Version 1)
Quarter: 2018Q2

REPORT INFORMATION
  Report Type: Spontaneous
  Country: US (occurrence: US)
  Receive Date: 20180420
  Receipt Date: 20180420
  Transmission Date: 20180711
  Serious: No
  Sender: FDA-Public Use
  Company Number: US-TEVA-2018-US-871218

PATIENT
  Sex: Male

DRUGS (2)
  1. ALPRAZOLAM. [Concomitant]
     Active Substance: ALPRAZOLAM
  2. TRAZODONE [Suspect]
     Active Substance: TRAZODONE HYDROCHLORIDE
     Indication: INSOMNIA
     Dosage: 200 MILLIGRAM DAILY;
     Route: 065

REACTIONS (5)
  - Dry mouth [Recovered/Resolved]
  - Middle insomnia [Unknown]
  - Incorrect dose administered [Unknown]
  - Dyspnoea [Unknown]
  - Thirst [Unknown]
